FAERS Safety Report 19144331 (Version 1)
Quarter: 2021Q2

REPORT INFORMATION
  Report Type: Spontaneous
  Country: GB (occurrence: GB)
  Receive Date: 20210416
  Receipt Date: 20210416
  Transmission Date: 20210717
  Serious: Yes (Hospitalization)
  Sender: FDA-Public Use
  Company Number: GB-TEVA-2021-GB-1900198

PATIENT
  Age: 70 Year
  Sex: Female

DRUGS (6)
  1. RAMIPRIL. [Suspect]
     Active Substance: RAMIPRIL
     Indication: ASTHMA
     Dosage: 10 MILLIGRAM DAILY; RAMIPRIL 10 MG CAPS 28
     Dates: start: 201912
  2. BISOPROLOL [Concomitant]
     Active Substance: BISOPROLOL
     Indication: MYOCARDIAL INFARCTION
  3. ASPIRIN 75MG DISPERSIBLE TABLETS [Concomitant]
     Indication: MYOCARDIAL INFARCTION
  4. LEVOTHYROXINE. [Concomitant]
     Active Substance: LEVOTHYROXINE
     Dosage: FROM DECEMBER
  5. LIPITOR [Concomitant]
     Active Substance: ATORVASTATIN CALCIUM
     Indication: MYOCARDIAL INFARCTION
  6. BRILIQUE [Concomitant]
     Active Substance: TICAGRELOR
     Dosage: DISPERSIBLE
     Dates: start: 20210315

REACTIONS (6)
  - Product use in unapproved indication [Unknown]
  - Diaphragmalgia [Recovering/Resolving]
  - Adverse drug reaction [Unknown]
  - Weight decreased [Unknown]
  - Lymphadenopathy [Not Recovered/Not Resolved]
  - Rash [Recovering/Resolving]
